FAERS Safety Report 10399731 (Version 1)
Quarter: 2014Q3

REPORT INFORMATION
  Report Type: Spontaneous
  Country: FR (occurrence: FR)
  Receive Date: 20140821
  Receipt Date: 20140821
  Transmission Date: 20150326
  Serious: Yes (Other)
  Sender: FDA-Public Use
  Company Number: FR-BAYER-2014-123240

PATIENT
  Age: 30 Year
  Sex: Female

DRUGS (3)
  1. CIFLOX [Suspect]
     Active Substance: CIPROFLOXACIN
     Indication: ABDOMINAL WALL ABSCESS
     Dosage: 750 MG, BID
     Route: 048
     Dates: start: 20130809, end: 20130820
  2. TAZOCILLINE [Suspect]
     Active Substance: PIPERACILLIN SODIUM\TAZOBACTAM SODIUM
     Indication: ABDOMINAL WALL ABSCESS
     Dosage: 41 DF, TID
     Route: 042
     Dates: start: 20130809, end: 20130820
  3. PLAQUENIL [Concomitant]
     Active Substance: HYDROXYCHLOROQUINE SULFATE
     Dosage: UNK

REACTIONS (7)
  - Hepatomegaly [Recovered/Resolved]
  - Hepatocellular injury [Recovered/Resolved]
  - Pyrexia [Recovered/Resolved]
  - Neutropenia [Recovered/Resolved]
  - Splenomegaly [Recovered/Resolved]
  - Leukopenia [Recovered/Resolved]
  - Rash generalised [Recovered/Resolved]

NARRATIVE: CASE EVENT DATE: 20130818
